FAERS Safety Report 9526475 (Version 3)
Quarter: 2013Q4

REPORT INFORMATION
  Report Type: Spontaneous
  Country: AU (occurrence: US)
  Receive Date: 20130916
  Receipt Date: 20131001
  Transmission Date: 20140711
  Serious: Yes (Other)
  Sender: FDA-Public Use
  Company Number: AU-JNJFOC-20130906211

PATIENT
  Sex: Male

DRUGS (1)
  1. TAPENTADOL HYDROCHLORIDE [Suspect]
     Indication: PRODUCT USED FOR UNKNOWN INDICATION
     Route: 065

REACTIONS (4)
  - Serotonin syndrome [Recovered/Resolved]
  - Hyperkinesia [Recovered/Resolved]
  - Aggression [Recovered/Resolved]
  - Speech disorder [Recovered/Resolved]
